FAERS Safety Report 25971872 (Version 1)
Quarter: 2025Q4

REPORT INFORMATION
  Report Type: Spontaneous
  Country: US (occurrence: US)
  Receive Date: 20251029
  Receipt Date: 20251029
  Transmission Date: 20260117
  Serious: Yes (Congenital Anomaly)
  Sender: ANI
  Company Number: US-ANIPHARMA-030989

PATIENT
  Age: 0 Year
  Sex: Male
  Weight: 4.26 kg

DRUGS (1)
  1. METOCLOPRAMIDE [Suspect]
     Active Substance: METOCLOPRAMIDE
     Indication: Product used for unknown indication
     Route: 064

REACTIONS (3)
  - Haemangioma [Unknown]
  - Postnatal growth restriction [Recovered/Resolved]
  - Foetal exposure during pregnancy [Unknown]

NARRATIVE: CASE EVENT DATE: 20250703
